FAERS Safety Report 18187071 (Version 2)
Quarter: 2020Q3

REPORT INFORMATION
  Report Type: Spontaneous
  Country: US (occurrence: US)
  Receive Date: 20200824
  Receipt Date: 20200918
  Transmission Date: 20201103
  Serious: No
  Sender: FDA-Public Use
  Company Number: US-GLAXOSMITHKLINE-US2020AMR164998

PATIENT
  Sex: Female

DRUGS (1)
  1. ZEJULA [Suspect]
     Active Substance: NIRAPARIB
     Indication: OVARIAN CANCER
     Dosage: 200 MG, QD, AT 12:00 PM WITH FOOD
     Route: 065
     Dates: start: 20200805

REACTIONS (5)
  - Back pain [Unknown]
  - Abdominal pain [Unknown]
  - Breast pain [Unknown]
  - Arthralgia [Unknown]
  - White blood cell count decreased [Recovering/Resolving]
